FAERS Safety Report 21937296 (Version 2)
Quarter: 2023Q2

REPORT INFORMATION
  Report Type: Spontaneous
  Country: AU (occurrence: None)
  Receive Date: 20230201
  Receipt Date: 20230518
  Transmission Date: 20230722
  Serious: Yes (Other)
  Sender: FDA-Public Use
  Company Number: AU-Merck Healthcare KGaA-9379748

PATIENT
  Sex: Female

DRUGS (4)
  1. MAVENCLAD [Suspect]
     Active Substance: CLADRIBINE
     Indication: Multiple sclerosis
     Dosage: YEAR ONE THERAPY
     Dates: start: 2019
  2. MAVENCLAD [Suspect]
     Active Substance: CLADRIBINE
     Dosage: YEAR TWO THERAPY
     Dates: start: 2020
  3. MAVENCLAD [Suspect]
     Active Substance: CLADRIBINE
     Dosage: YEAR THREE WEEK ONE THERAPY
     Dates: start: 202209
  4. MAVENCLAD [Suspect]
     Active Substance: CLADRIBINE
     Dosage: YEAR THREE WEEK FIVE THERAPY
     Dates: start: 202211

REACTIONS (4)
  - Pneumonia [Unknown]
  - Lower respiratory tract infection [Unknown]
  - Lymphopenia [Unknown]
  - Off label use [Unknown]
